FAERS Safety Report 7464355-6 (Version None)
Quarter: 2011Q2

REPORT INFORMATION
  Report Type: 
  Country: None (occurrence: None)
  Receive Date: 20110509
  Receipt Date: 20110502
  Transmission Date: 20111010
  Serious: Yes (Death)
  Sender: FDA-Public Use
  Company Number: CA-BAYER-2011-024343

PATIENT
  Age: 73 Year
  Sex: Male

DRUGS (6)
  1. NEXAVAR [Suspect]
     Indication: HEPATIC NEOPLASM MALIGNANT
     Dosage: 400 MG, BID
     Route: 048
     Dates: start: 20100101
  2. NAPROXEN (ALEVE) [Suspect]
     Dosage: 220 MG, BID
     Route: 048
  3. METFORMIN [Concomitant]
     Dosage: 500 MG, TID
     Route: 048
  4. DICETEL [Concomitant]
     Dosage: 100 MG, BID
     Route: 048
  5. GLYBURIDE [Concomitant]
     Dosage: 20 MG, BID
     Route: 048
  6. MINOCYCLINE [Concomitant]
     Dosage: 100 MG, BID
     Route: 048

REACTIONS (4)
  - LOSS OF CONSCIOUSNESS [None]
  - RESPIRATORY ARREST [None]
  - INTRACRANIAL HAEMATOMA [None]
  - DISORIENTATION [None]
